FAERS Safety Report 4490927-7 (Version None)
Quarter: 2004Q4

REPORT INFORMATION
  Report Type: 
  Country: None (occurrence: None)
  Receive Date: 20041027
  Receipt Date: 20041013
  Transmission Date: 20050328
  Serious: Yes (Hospitalization)
  Sender: FDA-Public Use
  Company Number: 2004S1000193

PATIENT
  Age: 24 Year
  Sex: Male
  Weight: 63.6 kg

DRUGS (3)
  1. CUBICIN [Suspect]
     Dosage: IV
     Route: 042
     Dates: start: 20040908, end: 20040910
  2. VANCOMYCIN [Concomitant]
  3. OXACILLIN [Concomitant]

REACTIONS (5)
  - DIALYSIS [None]
  - HAEMODIALYSIS [None]
  - MENINGISM [None]
  - POST PROCEDURAL COMPLICATION [None]
  - RENAL TUBULAR NECROSIS [None]
